FAERS Safety Report 23615518 (Version 1)
Quarter: 2024Q1

REPORT INFORMATION
  Report Type: Spontaneous
  Country: CN (occurrence: CN)
  Receive Date: 20240311
  Receipt Date: 20240311
  Transmission Date: 20240410
  Serious: Yes (Hospitalization)
  Sender: FDA-Public Use
  Company Number: CN-ELI_LILLY_AND_COMPANY-CN202402017448

PATIENT
  Age: 18 Year
  Sex: Male

DRUGS (2)
  1. OLANZAPINE [Suspect]
     Active Substance: OLANZAPINE
     Indication: Mental disorder
     Dosage: DISINTEGRATING TABLET/DOSE REDUCED?DAILY DOSE: 20 MILLIGRAM
     Route: 048
     Dates: start: 20240101
  2. OLANZAPINE [Suspect]
     Active Substance: OLANZAPINE
     Indication: Mental disorder
     Dosage: DAILY DOSE: 15 MILLIGRAM
     Route: 048
     Dates: end: 20240206

REACTIONS (2)
  - Liver function test abnormal [Not Recovered/Not Resolved]
  - Drug-induced liver injury [Not Recovered/Not Resolved]

NARRATIVE: CASE EVENT DATE: 20240201
